FAERS Safety Report 6453831-0 (Version None)
Quarter: 2009Q4

REPORT INFORMATION
  Report Type: 
  Country: None (occurrence: None)
  Receive Date: 20091123
  Receipt Date: 20091123
  Transmission Date: 20100525
  Serious: Yes (Other)
  Sender: FDA-Public Use
  Company Number: None

PATIENT
  Age: 11 Year
  Sex: Female
  Weight: 30.391 kg

DRUGS (1)
  1. TAMIFLU [Suspect]
     Dosage: 60MG. 2 X DAY
     Dates: start: 20091029, end: 20091102

REACTIONS (3)
  - DIZZINESS [None]
  - HALLUCINATION, AUDITORY [None]
  - PRODUCT QUALITY ISSUE [None]
